FAERS Safety Report 4491493-2 (Version None)
Quarter: 2004Q4

REPORT INFORMATION
  Report Type: 
  Country: None (occurrence: None)
  Receive Date: 20041101
  Receipt Date: 20041021
  Transmission Date: 20050328
  Serious: Yes (Hospitalization)
  Sender: FDA-Public Use
  Company Number: K200401636

PATIENT
  Age: 77 Year
  Sex: Female

DRUGS (6)
  1. ALTACE [Suspect]
     Dosage: 5 MG, QD, ORAL
     Route: 048
  2. CELECTOL [Suspect]
     Dosage: 200 MG, QD, ORAL
     Route: 048
  3. KARDEGIC (ACETYLSALICYLATE LYSINE) [Suspect]
     Dosage: ORAL
     Route: 048
  4. DEPAKENE [Suspect]
     Indication: EPILEPSY
     Dosage: 1500 MG, QD, ORAL
     Route: 048
  5. STABLON (TIANEPTINE) [Concomitant]
     Dosage: 25 MG, QD, ORAL
     Route: 048
  6. NEURONTIN [Concomitant]

REACTIONS (2)
  - HYPONATRAEMIA [None]
  - STATUS EPILEPTICUS [None]
